FAERS Safety Report 9661072 (Version 2)
Quarter: 2014Q2

REPORT INFORMATION
  Report Type: Spontaneous
  Country: DE (occurrence: None)
  Receive Date: 20131030
  Receipt Date: 20140429
  Transmission Date: 20141212
  Serious: Yes (Hospitalization, Other)
  Sender: FDA-Public Use
  Company Number: 1310-1346

PATIENT
  Age: 82 Year
  Sex: Male

DRUGS (1)
  1. EYLEA (AFLIBERCEPT) (SOLUTION FOR INJECTION) (AFLIBERCEPT) [Suspect]
     Indication: AGE-RELATED MACULAR DEGENERATION
     Dosage: EVERY OTHER MONTH
     Route: 031
     Dates: start: 20121213

REACTIONS (4)
  - Coronary arterial stent insertion [None]
  - Coronary artery bypass [None]
  - Dyspnoea exertional [None]
  - Inappropriate schedule of drug administration [None]
